FAERS Safety Report 10154016 (Version 4)
Quarter: 2014Q3

REPORT INFORMATION
  Report Type: Report from Study
  Country: CA (occurrence: CA)
  Receive Date: 20140506
  Receipt Date: 20140711
  Transmission Date: 20150326
  Serious: Yes (Hospitalization, Other)
  Sender: FDA-Public Use
  Company Number: CA-ROCHE-1349687

PATIENT
  Age: 41 Year
  Sex: Female

DRUGS (12)
  1. FENTANYL. [Concomitant]
     Active Substance: FENTANYL
     Route: 065
  2. ACTEMRA [Suspect]
     Active Substance: TOCILIZUMAB
     Indication: RHEUMATOID ARTHRITIS
     Route: 042
     Dates: start: 20140414, end: 20140512
  3. ARAVA [Concomitant]
     Active Substance: LEFLUNOMIDE
  4. ZOPICLONE [Concomitant]
     Active Substance: ZOPICLONE
  5. ELTROXIN [Concomitant]
     Active Substance: LEVOTHYROXINE
  6. RABEPRAZOLE [Concomitant]
     Active Substance: RABEPRAZOLE
  7. RAMIPRIL. [Concomitant]
     Active Substance: RAMIPRIL
  8. GABAPENTIN. [Concomitant]
     Active Substance: GABAPENTIN
  9. DILAUDID [Concomitant]
     Active Substance: HYDROMORPHONE HYDROCHLORIDE
  10. RITUXAN [Suspect]
     Active Substance: RITUXIMAB
     Indication: RHEUMATOID ARTHRITIS
     Route: 042
     Dates: start: 2011, end: 2011
  11. PREDNISONE. [Concomitant]
     Active Substance: PREDNISONE
  12. CYCLOBENZAPRINE [Concomitant]
     Active Substance: CYCLOBENZAPRINE

REACTIONS (11)
  - Arthralgia [Not Recovered/Not Resolved]
  - Pain [Unknown]
  - Palpitations [Unknown]
  - Malaise [Unknown]
  - Rheumatoid arthritis [Unknown]
  - Nausea [Unknown]
  - Chest pain [Unknown]
  - Abdominal distension [Unknown]
  - Fatigue [Not Recovered/Not Resolved]
  - Nasopharyngitis [Unknown]
  - Hypertension [Unknown]

NARRATIVE: CASE EVENT DATE: 2011
